FAERS Safety Report 21719365 (Version 1)
Quarter: 2022Q4

REPORT INFORMATION
  Report Type: Spontaneous
  Country: IE (occurrence: IE)
  Receive Date: 20221213
  Receipt Date: 20221213
  Transmission Date: 20230112
  Serious: Yes (Other)
  Sender: FDA-Public Use
  Company Number: IE-HPRA-2022-100100

PATIENT
  Age: 42 Year
  Sex: Male

DRUGS (3)
  1. PREGABALIN [Suspect]
     Active Substance: PREGABALIN
     Indication: Product used for unknown indication
     Dosage: TAKEN INTERMITTENTLY OVER THE PAST YEARUP TO 3000MG DAILY, NOT EVERYDAY
     Route: 048
     Dates: start: 2021
  2. METHADONE  (GENERIC) [Concomitant]
     Indication: Product used for unknown indication
     Dosage: UNK
     Route: 065
  3. ALPRAZOLAM (G) [Concomitant]
     Indication: Product used for unknown indication
     Dosage: TAKES TABLETS THAT BUYS ON THE STREET, THESE MIGHT BE COUNTERFEIT.
     Route: 065

REACTIONS (2)
  - Drug abuse [Unknown]
  - Intentional product use issue [Unknown]

NARRATIVE: CASE EVENT DATE: 20210101
